FAERS Safety Report 21328350 (Version 1)
Quarter: 2022Q3

REPORT INFORMATION
  Report Type: Report from Study
  Country: CO (occurrence: CO)
  Receive Date: 20220913
  Receipt Date: 20220913
  Transmission Date: 20221027
  Serious: Yes (Hospitalization, Other)
  Sender: FDA-Public Use
  Company Number: CO-ABBVIE-22K-036-4536018-00

PATIENT
  Sex: Male
  Weight: 50 kg

DRUGS (1)
  1. SKYRIZI [Suspect]
     Active Substance: RISANKIZUMAB-RZAA
     Indication: Psoriasis
     Route: 058
     Dates: start: 20210625, end: 20220526

REACTIONS (9)
  - Chills [Recovering/Resolving]
  - Anal incontinence [Recovering/Resolving]
  - Malaise [Recovering/Resolving]
  - Bacterial infection [Recovering/Resolving]
  - Memory impairment [Recovering/Resolving]
  - Dysarthria [Recovering/Resolving]
  - Urinary incontinence [Recovering/Resolving]
  - Pyrexia [Recovering/Resolving]
  - Arthralgia [Recovering/Resolving]

NARRATIVE: CASE EVENT DATE: 20220101
